FAERS Safety Report 7347597-X (Version None)
Quarter: 2011Q1

REPORT INFORMATION
  Report Type: 
  Country: None (occurrence: None)
  Receive Date: 20110311
  Receipt Date: 20110301
  Transmission Date: 20110831
  Serious: Yes (Other)
  Sender: FDA-Public Use
  Company Number: IE-GENENTECH-314732

PATIENT
  Age: 68 Year
  Sex: Female

DRUGS (5)
  1. PREDNISONE TAB [Concomitant]
     Indication: B-CELL LYMPHOMA
     Dosage: UNK
  2. MABTHERA [Suspect]
     Indication: B-CELL LYMPHOMA
     Dosage: UNK
     Route: 065
     Dates: end: 20101201
  3. CYCLOPHOSPHAMIDE [Concomitant]
     Indication: B-CELL LYMPHOMA
     Dosage: UNK
  4. DOXORUBICIN [Concomitant]
     Indication: B-CELL LYMPHOMA
     Dosage: UNK
  5. VINCRISTINE [Concomitant]
     Indication: B-CELL LYMPHOMA
     Dosage: UNK

REACTIONS (2)
  - MUSCULAR WEAKNESS [None]
  - BACK PAIN [None]
